FAERS Safety Report 19881715 (Version 3)
Quarter: 2021Q4

REPORT INFORMATION
  Report Type: Report from Study
  Country: US (occurrence: US)
  Receive Date: 20210924
  Receipt Date: 20211012
  Transmission Date: 20220303
  Serious: Yes (Death, Hospitalization, Other)
  Sender: FDA-Public Use
  Company Number: US-BRISTOL-MYERS SQUIBB COMPANY-BMS-2021-084756

PATIENT
  Age: 68 Year
  Sex: Female
  Weight: 56 kg

DRUGS (2)
  1. NIVOLUMAB [Suspect]
     Active Substance: NIVOLUMAB
     Indication: Glioblastoma
     Dosage: 240 MILLIGRAM, Q2WK
     Route: 042
     Dates: start: 20200211
  2. LINRODOSTAT MESYLATE [Suspect]
     Active Substance: LINRODOSTAT MESYLATE
     Indication: Glioblastoma
     Dosage: 50 MILLIGRAM, QD
     Route: 048
     Dates: start: 20200211

REACTIONS (3)
  - Vasogenic cerebral oedema [Recovered/Resolved with Sequelae]
  - Malignant neoplasm progression [Fatal]
  - Hyperglycaemic hyperosmolar nonketotic syndrome [Recovered/Resolved with Sequelae]

NARRATIVE: CASE EVENT DATE: 20200619
